FAERS Safety Report 7465902-0 (Version None)
Quarter: 2011Q2

REPORT INFORMATION
  Report Type: 
  Country: None (occurrence: None)
  Receive Date: 20110509
  Receipt Date: 20100504
  Transmission Date: 20111010
  Serious: No
  Sender: FDA-Public Use
  Company Number: US-ALEXION-A201000507

PATIENT
  Sex: Male

DRUGS (6)
  1. DANAZOL [Concomitant]
     Dosage: 200 MG, UNK
     Route: 048
  2. SOLIRIS [Suspect]
     Dosage: 600 MG, QWX4
     Route: 042
     Dates: start: 20090709, end: 20090730
  3. SOLIRIS [Suspect]
     Dosage: 900 MG, Q2W
     Route: 042
     Dates: start: 20090101, end: 20100101
  4. SOLIRIS [Suspect]
     Dosage: 900 MG, Q12DAYS
     Route: 042
     Dates: start: 20100511
  5. DANAZOL [Concomitant]
     Dosage: 400 MG, UNK
  6. PRISTIQ [Concomitant]
     Indication: DEPRESSION
     Dosage: UNK
     Route: 048

REACTIONS (2)
  - BLOOD LACTATE DEHYDROGENASE INCREASED [None]
  - HAEMOLYSIS [None]
